FAERS Safety Report 18659819 (Version 1)
Quarter: 2020Q4

REPORT INFORMATION
  Report Type: Spontaneous
  Country: US (occurrence: US)
  Receive Date: 20201224
  Receipt Date: 20201224
  Transmission Date: 20210114
  Serious: No
  Sender: FDA-Public Use
  Company Number: US-DRREDDYS-USA/USA/20/0130137

PATIENT
  Age: 75 Year

DRUGS (1)
  1. ZENATANE [Suspect]
     Active Substance: ISOTRETINOIN
     Indication: PRODUCT USED FOR UNKNOWN INDICATION
     Dosage: RMA ISSUE DATE: 6/22/2020 2:00:52 PM, 6/22/2020 2:00:52 PM,  8/20/2020 12:59:45 PM, 9/24/2020 12:26:
     Route: 048

REACTIONS (1)
  - Hypercholesterolaemia [Unknown]
